FAERS Safety Report 22204984 (Version 1)
Quarter: 2023Q2

REPORT INFORMATION
  Report Type: Report from Study
  Country: BR (occurrence: None)
  Receive Date: 20230413
  Receipt Date: 20230413
  Transmission Date: 20230722
  Serious: Yes (Other)
  Sender: FDA-Public Use
  Company Number: BR-ROCHE-2499959

PATIENT
  Age: 62 Year
  Sex: Female
  Weight: 65.1 kg

DRUGS (6)
  1. PERTUZUMAB [Suspect]
     Active Substance: PERTUZUMAB
     Indication: HER2 positive breast cancer
     Dosage: 840 MG (INITIAL DOSE) FOLLOWED BY 420 MG?DATE OF MOST RECENT DOSE OF PERTUZUMAB (420 MG) PRIOR TO SA
     Route: 042
     Dates: start: 20190530
  2. TRASTUZUMAB [Suspect]
     Active Substance: TRASTUZUMAB
     Indication: HER2 positive breast cancer
     Dosage: 8 MG/KG (INITIAL DOSE) FOLLOWED BY 6 MG/KG?DATE OF MOST RECENT DOSE OF TRASTUZUMAB (384 MG) PRIOR TO
     Route: 042
     Dates: start: 20190530
  3. DOXORUBICIN [Suspect]
     Active Substance: DOXORUBICIN
     Indication: HER2 positive breast cancer
     Dosage: DATE OF MOST RECENT DOSE OF DOXORUBICIN (99 MG) PRIOR TO SAE ONSET ON 09/MAY/2019
     Route: 042
     Dates: start: 20190301
  4. PACLITAXEL [Suspect]
     Active Substance: PACLITAXEL
     Indication: HER2 positive breast cancer
     Dosage: DATE OF MOST RECENT DOSE OF PACLITAXEL (132 MG) PRIOR TO SAE ONSET ON 22/AUG/2019.
     Route: 042
     Dates: start: 20190606
  5. CYCLOPHOSPHAMIDE [Suspect]
     Active Substance: CYCLOPHOSPHAMIDE
     Indication: HER2 positive breast cancer
     Dosage: DATE OF MOST RECENT DOSE OF CYCLOPHOSPHAMIDE (990 MG) PRIOR TO SAE ONSET ON 09/MAY/2019
     Route: 042
     Dates: start: 20190301
  6. ATEZOLIZUMAB [Suspect]
     Active Substance: ATEZOLIZUMAB
     Indication: HER2 positive breast cancer
     Dosage: DATE OF MOST RECENT DOSE OF ATEZOLIZUMAB PRIOR TO SAE ONSET ON 31/OCT/2019
     Route: 041
     Dates: start: 20190301

REACTIONS (3)
  - Left ventricular dysfunction [Recovering/Resolving]
  - Restrictive cardiomyopathy [Recovering/Resolving]
  - Ejection fraction decreased [Recovered/Resolved]

NARRATIVE: CASE EVENT DATE: 20191120
